FAERS Safety Report 9116949 (Version 1)
Quarter: 2013Q1

REPORT INFORMATION
  Report Type: Spontaneous
  Country: US (occurrence: US)
  Receive Date: 20130225
  Receipt Date: 20130225
  Transmission Date: 20140127
  Serious: No
  Sender: FDA-Public Use
  Company Number: US-PFIZER INC-2013066939

PATIENT
  Age: 63 Year
  Sex: Male

DRUGS (13)
  1. EFFEXOR [Suspect]
     Indication: DEPRESSION
     Dosage: UNK
  2. SEPTRA [Suspect]
     Dosage: UNK
  3. FELDENE [Suspect]
     Dosage: UNK
  4. WELLBUTRIN [Suspect]
     Indication: DEPRESSION
     Dosage: UNK
  5. PAXIL [Suspect]
     Indication: DEPRESSION
     Dosage: UNK
  6. PROZAC [Suspect]
     Indication: DEPRESSION
     Dosage: UNK
  7. LUNESTA [Suspect]
     Indication: INSOMNIA
     Dosage: UNK
  8. TRAZODONE [Suspect]
     Indication: INSOMNIA
     Dosage: UNK
  9. SEROQUEL [Suspect]
     Indication: INSOMNIA
     Dosage: UNK
  10. NALFON [Suspect]
     Dosage: UNK
  11. AMPICILLIN [Suspect]
     Dosage: UNK
  12. NAPROSYN [Suspect]
     Dosage: UNK
  13. LODINE [Suspect]
     Dosage: UNK

REACTIONS (1)
  - Drug hypersensitivity [Unknown]
